FAERS Safety Report 9580530 (Version 1)
Quarter: 2013Q3

REPORT INFORMATION
  Report Type: Spontaneous
  Country: CA (occurrence: None)
  Receive Date: 20130916
  Receipt Date: 20130916
  Transmission Date: 20140515
  Serious: Yes (Other)
  Sender: FDA-Public Use
  Company Number: JPI-P-031967

PATIENT
  Age: 53 Year
  Sex: Female

DRUGS (2)
  1. XYREM [Suspect]
     Indication: CATAPLEXY
     Dosage: 4.5 GM (2.25 GM, 2 IN 1 D), ORAL
     Route: 048
     Dates: start: 20130104, end: 20130223
  2. AMPHETAMINE AND DEXTROAMPHETAMINE [Suspect]
     Indication: PRODUCT USED FOR UNKNOWN INDICATION
     Dosage: 25 MG, 1 IN 1 D
     Dates: start: 20130422

REACTIONS (6)
  - Apnoea [None]
  - Hallucination, visual [None]
  - Diplopia [None]
  - Discomfort [None]
  - Fear [None]
  - Dyspnoea [None]
